FAERS Safety Report 9502823 (Version 2)
Quarter: 2013Q3

REPORT INFORMATION
  Report Type: Spontaneous
  Country: GB (occurrence: GB)
  Receive Date: 20130906
  Receipt Date: 20130906
  Transmission Date: 20140515
  Serious: Yes (Congenital Anomaly, Other)
  Sender: FDA-Public Use
  Company Number: GB-JNJFOC-JAUK26567

PATIENT
  Age: 0 Day
  Sex: Male
  Weight: 3.22 kg

DRUGS (7)
  1. VERMOX [Suspect]
     Indication: ENTEROBIASIS
     Route: 064
     Dates: start: 19950302, end: 19950302
  2. DAKTACORT [Concomitant]
     Route: 003
     Dates: start: 19950703
  3. GAVISCON [Concomitant]
     Indication: DYSPEPSIA
     Route: 048
     Dates: start: 19950603
  4. CHLORAMPHENICOL [Concomitant]
     Route: 047
     Dates: start: 19950214
  5. FOLIC ACID [Concomitant]
     Indication: PROPHYLAXIS
     Route: 048
     Dates: start: 19950127, end: 19950327
  6. AMOXIL [Concomitant]
     Indication: LOWER RESPIRATORY TRACT INFECTION
     Route: 048
     Dates: start: 19950609, end: 19950616
  7. NARPHEN [Concomitant]
     Route: 048

REACTIONS (4)
  - Congenital hand malformation [Not Recovered/Not Resolved]
  - Inguinal hernia [Recovered/Resolved]
  - Foetal exposure during pregnancy [Recovered/Resolved]
  - Cardiac murmur [Recovered/Resolved]
